FAERS Safety Report 23776310 (Version 1)
Quarter: 2024Q2

REPORT INFORMATION
  Report Type: Report from Study
  Country: US (occurrence: US)
  Receive Date: 20240424
  Receipt Date: 20240424
  Transmission Date: 20240716
  Serious: Yes (Other)
  Sender: FDA-Public Use
  Company Number: US-ARGENX-2024-ARGX-US002454

PATIENT

DRUGS (2)
  1. VYVGART [Suspect]
     Active Substance: EFGARTIGIMOD ALFA-FCAB
     Indication: Myasthenia gravis
     Dosage: UNK
     Route: 042
     Dates: start: 20240222
  2. MESTINON [Suspect]
     Active Substance: PYRIDOSTIGMINE BROMIDE
     Indication: Product used for unknown indication
     Route: 065

REACTIONS (9)
  - Immunodeficiency [Unknown]
  - Dyspnoea at rest [Unknown]
  - Myasthenia gravis [Unknown]
  - Mobility decreased [Unknown]
  - Abdominal pain [Unknown]
  - Nausea [Unknown]
  - Weight decreased [Unknown]
  - Muscular weakness [Unknown]
  - Wheelchair user [Unknown]

NARRATIVE: CASE EVENT DATE: 20240301
